FAERS Safety Report 14572084 (Version 1)
Quarter: 2018Q1

REPORT INFORMATION
  Report Type: Spontaneous
  Country: US (occurrence: US)
  Receive Date: 20180223
  Receipt Date: 20180223
  Transmission Date: 20180509
  Serious: No
  Sender: FDA-Public Use
  Company Number: None

PATIENT
  Age: 39 Year
  Sex: Female
  Weight: 56 kg

DRUGS (1)
  1. AMIKACIN 790 MG FRESENIUS KABI [Suspect]
     Active Substance: AMIKACIN SULFATE
     Indication: BREAST ABSCESS
     Dosage: 790MG Q24H IV
     Route: 042
     Dates: start: 20171115, end: 20180214

REACTIONS (1)
  - Tinnitus [None]

NARRATIVE: CASE EVENT DATE: 20180214
